FAERS Safety Report 9760251 (Version 1)
Quarter: 2013Q4

REPORT INFORMATION
  Report Type: Spontaneous
  Country: US (occurrence: US)
  Receive Date: 20131216
  Receipt Date: 20131216
  Transmission Date: 20140711
  Serious: No
  Sender: FDA-Public Use
  Company Number: US-GILEAD-2010-0028974

PATIENT
  Sex: Female
  Weight: 79.38 kg

DRUGS (16)
  1. LETAIRIS [Suspect]
     Indication: PULMONARY ARTERIAL HYPERTENSION
     Route: 048
     Dates: start: 20100409
  2. OXYGEN [Concomitant]
  3. COLCHICINE [Concomitant]
  4. MIRAPEX [Concomitant]
  5. LASIX [Concomitant]
  6. REVATIO [Concomitant]
  7. SOTALOL [Concomitant]
  8. METOLAZONE [Concomitant]
  9. POTASSIUM CHLORIDE [Concomitant]
  10. TESSALON [Concomitant]
  11. FISH OIL [Concomitant]
  12. ASPIRIN [Concomitant]
  13. PROAIR HFA [Concomitant]
  14. MULTIVITAMIN [Concomitant]
  15. CALCIUM W/VITAMIN D [Concomitant]
  16. VITAMIN B1 [Concomitant]

REACTIONS (1)
  - Swelling [Unknown]
